FAERS Safety Report 9830932 (Version 1)
Quarter: 2014Q1

REPORT INFORMATION
  Report Type: Spontaneous
  Country: NO (occurrence: NO)
  Receive Date: 20140120
  Receipt Date: 20140120
  Transmission Date: 20141002
  Serious: Yes (Other)
  Sender: FDA-Public Use
  Company Number: PHHY2014NO004144

PATIENT
  Age: 11 Year
  Sex: Male
  Weight: 32 kg

DRUGS (4)
  1. RITALIN [Suspect]
     Indication: ATTENTION DEFICIT/HYPERACTIVITY DISORDER
     Dosage: 20 MG, QD
     Dates: start: 20120119, end: 20130828
  2. OMEGA 3 [Concomitant]
     Indication: NUTRITIONAL SUPPLEMENTATION
     Dosage: UNK UKN, UNK
  3. OMEGA 9 FATTY ACIDS [Concomitant]
     Indication: NUTRITIONAL SUPPLEMENTATION
     Dosage: UNK UKN, UNK
  4. OMEGA-6 FATTY ACIDS [Concomitant]
     Indication: NUTRITIONAL SUPPLEMENTATION
     Dosage: UNK UKN, UNK

REACTIONS (8)
  - Suicidal ideation [Recovering/Resolving]
  - Psoriasis [Recovering/Resolving]
  - Cardiac fibrillation [Recovering/Resolving]
  - Depression [Recovering/Resolving]
  - Chest pain [Recovering/Resolving]
  - Palpitations [Recovering/Resolving]
  - Decreased appetite [Recovered/Resolved]
  - Anxiety [Recovering/Resolving]
